FAERS Safety Report 4508472-9 (Version None)
Quarter: 2004Q4

REPORT INFORMATION
  Report Type: 
  Country: None (occurrence: None)
  Receive Date: 20041123
  Receipt Date: 20040226
  Transmission Date: 20050328
  Serious: No
  Sender: FDA-Public Use
  Company Number: 04-00071

PATIENT
  Sex: Female

DRUGS (2)
  1. WELLBUTRIN SR [Suspect]
     Indication: DRUG USE FOR UNKNOWN INDICATION
     Dosage: 150MG PER DAY
     Route: 048
  2. NYSTATIN-TRIAMCINOLONE ACETONIDE [Suspect]
     Indication: SKIN DISORDER
     Dosage: .1%DS UNKNOWN
     Route: 061
     Dates: start: 20040203

REACTIONS (1)
  - TINNITUS [None]
